FAERS Safety Report 7508572-5 (Version None)
Quarter: 2011Q2

REPORT INFORMATION
  Report Type: 
  Country: None (occurrence: None)
  Receive Date: 20110527
  Receipt Date: 20110524
  Transmission Date: 20111010
  Serious: Yes (Hospitalization)
  Sender: FDA-Public Use
  Company Number: US-SANOFI-AVENTIS-2011SA026721

PATIENT
  Age: 51 Year
  Sex: Female
  Weight: 65.7 kg

DRUGS (7)
  1. MULTAQ [Suspect]
     Indication: ATRIAL FIBRILLATION
     Route: 048
     Dates: start: 20110415, end: 20110418
  2. OMEPRAZOLE [Concomitant]
  3. KLOR-CON [Concomitant]
  4. MULTAQ [Suspect]
     Route: 048
     Dates: start: 20110415, end: 20110418
  5. FOLIC ACID [Concomitant]
  6. LEVOTHYROXINE SODIUM [Concomitant]
     Indication: THYROID DISORDER
  7. FERROUS SULFATE TAB [Concomitant]

REACTIONS (3)
  - DYSPNOEA [None]
  - URTICARIA [None]
  - SWELLING FACE [None]
